FAERS Safety Report 17224571 (Version 1)
Quarter: 2020Q1

REPORT INFORMATION
  Report Type: Spontaneous
  Country: US (occurrence: US)
  Receive Date: 20200102
  Receipt Date: 20200102
  Transmission Date: 20200409
  Serious: No
  Sender: FDA-Public Use
  Company Number: US-ASTRAZENECA-2019SF92308

PATIENT
  Age: 43 Year
  Sex: Female
  Weight: 127.1 kg

DRUGS (2)
  1. NEXIUM [Suspect]
     Active Substance: ESOMEPRAZOLE MAGNESIUM
     Route: 048
     Dates: start: 1997
  2. NEXIUM 24HR [Suspect]
     Active Substance: ESOMEPRAZOLE MAGNESIUM
     Indication: GASTROOESOPHAGEAL REFLUX DISEASE
     Dosage: 20 MG, 1X/DAY(THE 14 DAY COURSE, THEN STOPPED AND IN 2-3 MONTHS SHE TOOK IT AGAIN FOR SYMPTOMS)
     Route: 048

REACTIONS (5)
  - Dyspepsia [Unknown]
  - Vitamin B12 deficiency [Recovering/Resolving]
  - Gastrooesophageal reflux disease [Unknown]
  - Chest pain [Unknown]
  - Magnesium deficiency [Not Recovered/Not Resolved]

NARRATIVE: CASE EVENT DATE: 2004
